FAERS Safety Report 9360059 (Version 1)
Quarter: 2013Q2

REPORT INFORMATION
  Report Type: Spontaneous
  Country: US (occurrence: US)
  Receive Date: 20130621
  Receipt Date: 20130621
  Transmission Date: 20140414
  Serious: No
  Sender: FDA-Public Use
  Company Number: US-PFIZER INC-2013184854

PATIENT
  Sex: Female

DRUGS (1)
  1. LYRICA [Suspect]
     Indication: NECK PAIN
     Dosage: UNK
     Dates: start: 2011

REACTIONS (2)
  - Glossodynia [Unknown]
  - Glossitis [Unknown]
